FAERS Safety Report 5522599-4 (Version None)
Quarter: 2007Q4

REPORT INFORMATION
  Report Type: 
  Country: None (occurrence: None)
  Receive Date: 20071120
  Receipt Date: 20071109
  Transmission Date: 20080405
  Serious: Yes (Other)
  Sender: FDA-Public Use
  Company Number: DE-PFIZER INC-2007095141

PATIENT
  Sex: Female

DRUGS (1)
  1. AROMASIN [Suspect]
     Route: 048
     Dates: start: 20070501, end: 20070910

REACTIONS (1)
  - HEPATIC ENZYME ABNORMAL [None]
